FAERS Safety Report 5001060-X (Version None)
Quarter: 2006Q2

REPORT INFORMATION
  Report Type: 
  Country: None (occurrence: None)
  Receive Date: 20060512
  Receipt Date: 20060510
  Transmission Date: 20061013
  Serious: Yes (Other)
  Sender: FDA-Public Use
  Company Number: DE-GLAXOSMITHKLINE-D0049686A

PATIENT
  Age: 78 Year
  Sex: Female

DRUGS (2)
  1. LAMICTAL [Suspect]
     Route: 048
  2. KEPPRA [Concomitant]
     Route: 065

REACTIONS (2)
  - ELECTROLYTE IMBALANCE [None]
  - HYPOKALAEMIA [None]
